FAERS Safety Report 5696330-6 (Version None)
Quarter: 2008Q2

REPORT INFORMATION
  Report Type: 
  Country: None (occurrence: None)
  Receive Date: 20080407
  Receipt Date: 20080328
  Transmission Date: 20081010
  Serious: Yes (Other)
  Sender: FDA-Public Use
  Company Number: FR-PFIZER INC-2008011869

PATIENT
  Sex: Female
  Weight: 50 kg

DRUGS (6)
  1. AMLOR [Suspect]
     Indication: HYPERTENSION
     Dosage: TEXT:1 DOSE FORM-FREQ:EVERY DAY
     Route: 048
     Dates: start: 20071218, end: 20080112
  2. PROCTOLOG [Interacting]
     Indication: CONSTIPATION
     Dosage: TEXT:3 APPLICATIONS.-FREQ:EVERY DAY
     Route: 062
     Dates: start: 20080115, end: 20080119
  3. PROCTOLOG [Interacting]
     Indication: HAEMORRHOIDS
     Route: 054
     Dates: start: 20080115, end: 20080119
  4. SORAFENIB TOSILATE [Interacting]
     Indication: METASTASES TO LUNG
     Dosage: DAILY DOSE:800MG-FREQ:EVERY DAY
     Route: 048
     Dates: start: 20080107, end: 20080114
  5. RILMENIDINE DIHYDROGEN PHOSPHATE [Concomitant]
  6. ALTIZIDE W/SPIRONOLACTONE [Concomitant]

REACTIONS (4)
  - DRUG INTERACTION [None]
  - FACE OEDEMA [None]
  - PRURITUS [None]
  - RASH [None]
